FAERS Safety Report 8371288-X (Version None)
Quarter: 2012Q2

REPORT INFORMATION
  Report Type: 
  Country: None (occurrence: None)
  Receive Date: 20120518
  Receipt Date: 20120510
  Transmission Date: 20120825
  Serious: No
  Sender: FDA-Public Use
  Company Number: US-B.I. PHARMACEUTICALS,INC./RIDGEFIELD-2012-BP-10541BP

PATIENT
  Sex: Male

DRUGS (12)
  1. ASPIRIN [Concomitant]
     Indication: CARDIAC DISORDER
     Dosage: 81 MG
     Route: 048
  2. MIRAPEX [Concomitant]
     Indication: PARKINSON'S DISEASE
     Dosage: 1.5 MG
     Route: 048
  3. ATENOLOL [Concomitant]
     Indication: HYPERTENSION
     Dosage: 25 MG
     Route: 048
  4. PLAVIX [Concomitant]
     Indication: CARDIAC DISORDER
     Dosage: 75 MG
     Route: 048
  5. PRADAXA [Suspect]
     Indication: ATRIAL FIBRILLATION
     Dosage: 300 MG
     Route: 048
     Dates: start: 20120503
  6. ATIVAN [Concomitant]
     Indication: ANXIETY
     Dosage: 6 MG
     Route: 048
  7. LITHIUM CARBONATE [Concomitant]
     Indication: BIPOLAR DISORDER
     Dosage: 600 MG
     Route: 048
  8. SINEMET [Concomitant]
     Indication: PARKINSON'S DISEASE
     Route: 048
  9. LITHIUM CARBONATE [Concomitant]
     Dosage: 450 MG
     Route: 048
  10. LAMICTAL [Concomitant]
     Indication: BIPOLAR DISORDER
     Dosage: 125 MG
     Route: 048
  11. MELLARIL [Concomitant]
     Indication: BIPOLAR DISORDER
     Dosage: 20 MG
     Route: 048
  12. ZOCOR [Concomitant]
     Indication: BLOOD CHOLESTEROL INCREASED
     Dosage: 40 MG
     Route: 048

REACTIONS (2)
  - HEADACHE [None]
  - DIZZINESS [None]
